FAERS Safety Report 17448253 (Version 1)
Quarter: 2020Q1

REPORT INFORMATION
  Report Type: Report from Study
  Country: IN (occurrence: IN)
  Receive Date: 20200223
  Receipt Date: 20200223
  Transmission Date: 20200409
  Serious: Yes (Other)
  Sender: FDA-Public Use
  Company Number: PHHY2019IN194826

PATIENT
  Sex: Male

DRUGS (2)
  1. SCAPHO [Suspect]
     Active Substance: SECUKINUMAB
     Dosage: 300 MG, QMO
     Route: 058
  2. SCAPHO [Suspect]
     Active Substance: SECUKINUMAB
     Indication: PSORIATIC ARTHROPATHY
     Dosage: 150 MG
     Route: 058
     Dates: start: 20190810

REACTIONS (7)
  - Pyrexia [Recovered/Resolved]
  - Dysentery [Not Recovered/Not Resolved]
  - Psoriatic arthropathy [Unknown]
  - Food poisoning [Unknown]
  - Pain [Unknown]
  - Nasopharyngitis [Unknown]
  - Pyrexia [Unknown]
